FAERS Safety Report 9584679 (Version 1)
Quarter: 2013Q4

REPORT INFORMATION
  Report Type: Spontaneous
  Country: US (occurrence: US)
  Receive Date: 20131002
  Receipt Date: 20131002
  Transmission Date: 20140711
  Serious: No
  Sender: FDA-Public Use
  Company Number: US-AMGEN-USASP2013054749

PATIENT
  Age: 43 Year
  Sex: Female
  Weight: 116.1 kg

DRUGS (13)
  1. ENBREL [Suspect]
     Indication: PSORIATIC ARTHROPATHY
     Dosage: 50 MG, QWK
     Route: 058
  2. CYMBALTA [Concomitant]
     Dosage: 30 MG, UNK
  3. HUMALOG [Concomitant]
     Dosage: 100/ML
  4. HUMULIN N [Concomitant]
     Dosage: U-100
  5. ESTROGEL [Concomitant]
     Dosage: UNK
  6. METHOTREXATE [Concomitant]
     Dosage: 2.5 MG, UNK
  7. NEURONTIN [Concomitant]
     Dosage: 400 MG, UNK
  8. SYNTHROID [Concomitant]
     Dosage: 125 MUG, UNK
  9. LANTUS [Concomitant]
     Dosage: 100/ML
  10. PROGESTERONE [Concomitant]
     Dosage: 100 MG, UNK
  11. PREDNISONE [Concomitant]
     Dosage: 5 MG, UNK
  12. CLARITIN                           /00413701/ [Concomitant]
     Dosage: 10 MG, UNK
  13. FOLIC ACID [Concomitant]
     Dosage: UNK

REACTIONS (3)
  - Nausea [Unknown]
  - Influenza like illness [Unknown]
  - Headache [Unknown]
